FAERS Safety Report 18796462 (Version 1)
Quarter: 2021Q1

REPORT INFORMATION
  Report Type: Spontaneous
  Country: CA (occurrence: CA)
  Receive Date: 20210127
  Receipt Date: 20210127
  Transmission Date: 20210419
  Serious: Yes (Other)
  Sender: FDA-Public Use
  Company Number: CA-AUROBINDO-AUR-APL-2021-002885

PATIENT
  Age: 29 Year
  Sex: Female
  Weight: 75 kg

DRUGS (1)
  1. LEVETIRACETAM TABLET [Suspect]
     Active Substance: LEVETIRACETAM
     Indication: SEIZURE
     Dosage: 500 MILLIGRAM, TWO TIMES A DAY
     Route: 048

REACTIONS (3)
  - Therapeutic response changed [Recovered/Resolved]
  - Seizure [Recovered/Resolved]
  - Product substitution issue [Recovered/Resolved]
